FAERS Safety Report 20530827 (Version 2)
Quarter: 2022Q1

REPORT INFORMATION
  Report Type: Report from Study
  Country: US (occurrence: US)
  Receive Date: 20220301
  Receipt Date: 20220309
  Transmission Date: 20220423
  Serious: No
  Sender: FDA-Public Use
  Company Number: US-NOVARTISTESTPH-NVSC2022US048817

PATIENT
  Age: 79 Year
  Sex: Female
  Weight: 62.6 kg

DRUGS (1)
  1. ENTRESTO [Suspect]
     Active Substance: SACUBITRIL\VALSARTAN
     Indication: Cardiac failure chronic
     Dosage: 24.26 MG, BID
     Route: 048
     Dates: start: 20220210

REACTIONS (4)
  - Lip swelling [Recovering/Resolving]
  - Oropharyngeal discomfort [Unknown]
  - Poor quality sleep [Unknown]
  - Fatigue [Unknown]

NARRATIVE: CASE EVENT DATE: 20220210
